FAERS Safety Report 4827814-8 (Version None)
Quarter: 2005Q4

REPORT INFORMATION
  Report Type: 
  Country: None (occurrence: None)
  Receive Date: 20051114
  Receipt Date: 20051114
  Transmission Date: 20060501
  Serious: Yes (Hospitalization, Disabling)
  Sender: FDA-Public Use
  Company Number: None

PATIENT
  Age: 67 Year
  Sex: Female
  Weight: 65 kg

DRUGS (1)
  1. DEPODUR [Suspect]
     Indication: HIP SURGERY
     Dosage: 8 MG    ONCE   EPIDURAL
     Route: 008
     Dates: start: 20051012, end: 20051012

REACTIONS (5)
  - BLOOD PRESSURE DECREASED [None]
  - NAUSEA [None]
  - PRURITUS [None]
  - RASH [None]
  - RESPIRATORY RATE DECREASED [None]
